FAERS Safety Report 26180611 (Version 1)
Quarter: 2025Q4

REPORT INFORMATION
  Report Type: Spontaneous
  Country: US (occurrence: US)
  Receive Date: 20251219
  Receipt Date: 20251219
  Transmission Date: 20260117
  Serious: No
  Sender: AMGEN
  Company Number: US-AMGEN-USASP2025246781

PATIENT
  Age: 42 Year
  Sex: Male

DRUGS (1)
  1. REPATHA [Suspect]
     Active Substance: EVOLOCUMAB
     Indication: Product used for unknown indication
     Dosage: 140 MILLIGRAM, Q2WK
     Route: 065
     Dates: start: 2025

REACTIONS (3)
  - Injection site discolouration [Recovered/Resolved]
  - Device difficult to use [Unknown]
  - Product administration error [Unknown]

NARRATIVE: CASE EVENT DATE: 20251207
